FAERS Safety Report 25584048 (Version 1)
Quarter: 2025Q3

REPORT INFORMATION
  Report Type: Spontaneous
  Country: GB (occurrence: GB)
  Receive Date: 20250721
  Receipt Date: 20250721
  Transmission Date: 20251020
  Serious: Yes (Other)
  Sender: EPIC PHARM
  Company Number: GB-EPICPHARMA-GB-2025EPCLIT00823

PATIENT
  Age: 64 Year
  Sex: Male

DRUGS (4)
  1. IRINOTECAN HYDROCHLORIDE [Suspect]
     Active Substance: IRINOTECAN HYDROCHLORIDE
     Indication: Acinar cell carcinoma of pancreas
     Route: 065
  2. FLUOROURACIL [Suspect]
     Active Substance: FLUOROURACIL
     Indication: Acinar cell carcinoma of pancreas
     Route: 065
  3. OXALIPLATIN [Suspect]
     Active Substance: OXALIPLATIN
     Indication: Acinar cell carcinoma of pancreas
     Route: 065
  4. TRASTUZUMAB [Suspect]
     Active Substance: TRASTUZUMAB
     Indication: Acinar cell carcinoma of pancreas
     Route: 065

REACTIONS (4)
  - Acute kidney injury [Unknown]
  - Myeloma cast nephropathy [Unknown]
  - Tubulointerstitial nephritis [Unknown]
  - Product use in unapproved indication [Unknown]
